FAERS Safety Report 15824719 (Version 4)
Quarter: 2019Q2

REPORT INFORMATION
  Report Type: Spontaneous
  Country: CN (occurrence: CN)
  Receive Date: 20190115
  Receipt Date: 20190409
  Transmission Date: 20190711
  Serious: Yes (Other)
  Sender: FDA-Public Use
  Company Number: CN-ASTRAZENECA-2019SE01912

PATIENT
  Age: 62 Year
  Sex: Female

DRUGS (4)
  1. LYNPARZA [Suspect]
     Active Substance: OLAPARIB
     Indication: OVARIAN CANCER
     Route: 048
  2. CARBOPLATIN/ PACLITAXEL [Concomitant]
  3. CANTHARIDES [Concomitant]
     Active Substance: HOMEOPATHICS\LYTTA VESICATORIA
     Dates: start: 20181210, end: 20190103
  4. LYNPARZA [Suspect]
     Active Substance: OLAPARIB
     Indication: OVARIAN CANCER
     Route: 048
     Dates: start: 201811

REACTIONS (10)
  - Eye swelling [Recovering/Resolving]
  - Dysuria [Recovering/Resolving]
  - Acute kidney injury [Unknown]
  - Malignant neoplasm progression [Unknown]
  - Oedema [Recovering/Resolving]
  - Proteinuria [Unknown]
  - Creatinine renal clearance decreased [Unknown]
  - Peripheral swelling [Unknown]
  - Decreased appetite [Not Recovered/Not Resolved]
  - Asthenia [Not Recovered/Not Resolved]

NARRATIVE: CASE EVENT DATE: 2018
